FAERS Safety Report 25388425 (Version 1)
Quarter: 2025Q2

REPORT INFORMATION
  Report Type: Spontaneous
  Country: RO (occurrence: RO)
  Receive Date: 20250603
  Receipt Date: 20250603
  Transmission Date: 20250716
  Serious: Yes (Life-Threatening, Hospitalization, Other)
  Sender: SANDOZ
  Company Number: RO-VITEMA-2025-011

PATIENT
  Age: 25 Year
  Sex: Female

DRUGS (1)
  1. METHOTREXATE [Suspect]
     Active Substance: METHOTREXATE
     Indication: Gestational trophoblastic tumour
     Dosage: THE PATIENT RECEIVED THREE DOSES OF METHOTREXATE. THE FIRST TWO DOSES WERE ADMINISTERED AT 7-DAY INT
     Route: 065

REACTIONS (2)
  - Choriocarcinoma [Recovered/Resolved with Sequelae]
  - Therapeutic response decreased [Recovered/Resolved with Sequelae]
